FAERS Safety Report 7936754-7 (Version None)
Quarter: 2011Q4

REPORT INFORMATION
  Report Type: 
  Country: None (occurrence: None)
  Receive Date: 20111123
  Receipt Date: 20111114
  Transmission Date: 20120403
  Serious: Yes (Hospitalization)
  Sender: FDA-Public Use
  Company Number: US-BAYER-2011-062067

PATIENT
  Age: 20 Year
  Sex: Female
  Weight: 92 kg

DRUGS (4)
  1. PROAIR HFA [Concomitant]
     Indication: DYSPNOEA
     Dosage: UNK
     Route: 055
  2. MIRENA [Concomitant]
  3. IBUPROFEN [Concomitant]
     Dosage: 200 MG, UNK
     Route: 048
  4. YASMIN [Suspect]
     Indication: PREMENSTRUAL SYNDROME
     Dosage: UNK
     Dates: start: 20020101, end: 20090601

REACTIONS (6)
  - INJURY [None]
  - PAIN [None]
  - ANXIETY [None]
  - CHOLELITHIASIS [None]
  - BILE DUCT STONE [None]
  - EMOTIONAL DISTRESS [None]
